FAERS Safety Report 17538030 (Version 1)
Quarter: 2020Q1

REPORT INFORMATION
  Report Type: Spontaneous
  Country: IT (occurrence: IT)
  Receive Date: 20200313
  Receipt Date: 20200313
  Transmission Date: 20200409
  Serious: Yes (Other)
  Sender: FDA-Public Use
  Company Number: IT-PFIZER INC-2020107660

PATIENT
  Sex: Female

DRUGS (3)
  1. SODIUM CHLORIDE. [Concomitant]
     Active Substance: SODIUM CHLORIDE
     Dosage: 100 ML, UNK, (PACLITAXEL WAS ADMINISTERED IN 100ML SODIUM CHLORIDE, OVER 30 MINUTES)
  2. PACLITAXEL. [Suspect]
     Active Substance: PACLITAXEL
     Indication: OVARIAN EPITHELIAL CANCER
     Dosage: UNK, CYCLIC (175MG/MQ; ADMINISTERED ON DAY 1 EVERY 21 DAYS)
  3. CARBOPLATIN. [Concomitant]
     Active Substance: CARBOPLATIN
     Indication: OVARIAN EPITHELIAL CANCER
     Dosage: UNK, DOSE: AUC 5

REACTIONS (5)
  - Product use in unapproved indication [Unknown]
  - Back pain [Recovered/Resolved]
  - Off label use [Unknown]
  - Hot flush [Recovered/Resolved]
  - Hypersensitivity [Recovered/Resolved]
